FAERS Safety Report 17861570 (Version 1)
Quarter: 2020Q2

REPORT INFORMATION
  Report Type: Spontaneous
  Country: DE (occurrence: DE)
  Receive Date: 20200604
  Receipt Date: 20200604
  Transmission Date: 20200714
  Serious: Yes (Other)
  Sender: FDA-Public Use
  Company Number: DE-LUNDBECK-DKLU3017047

PATIENT
  Age: 10 Month
  Sex: Male

DRUGS (2)
  1. SABRIL [Suspect]
     Active Substance: VIGABATRIN
     Indication: INFANTILE SPASMS
     Route: 065
  2. PREDNISOLONE. [Concomitant]
     Active Substance: PREDNISOLONE
     Indication: PRODUCT USED FOR UNKNOWN INDICATION
     Route: 065

REACTIONS (8)
  - Magnetic resonance imaging abnormal [Unknown]
  - Dysphagia [Unknown]
  - Bradycardia [Unknown]
  - Seizure [Recovered/Resolved]
  - Infantile spasms [Recovered/Resolved]
  - Dystonia [Unknown]
  - Bulbar palsy [Unknown]
  - Stridor [Unknown]
